FAERS Safety Report 5072603-5 (Version None)
Quarter: 2006Q3

REPORT INFORMATION
  Report Type: 
  Country: None (occurrence: None)
  Receive Date: 20060807
  Receipt Date: 20041108
  Transmission Date: 20061208
  Serious: Yes (Other)
  Sender: FDA-Public Use
  Company Number: US-ROCHE-385907

PATIENT
  Sex: Male
  Weight: 3.6 kg

DRUGS (3)
  1. COPEGUS [Suspect]
     Indication: DRUG USE FOR UNKNOWN INDICATION
     Dates: start: 20030915, end: 20040621
  2. COPEGUS [Suspect]
     Dates: start: 20040622, end: 20040731
  3. PEG-INTERFERON ALFA NOS [Suspect]
     Indication: DRUG USE FOR UNKNOWN INDICATION
     Dates: end: 20040727

REACTIONS (3)
  - CARDIAC MURMUR [None]
  - NORMAL NEWBORN [None]
  - TRANSMISSION OF DRUG VIA SEMEN [None]
